FAERS Safety Report 21648697 (Version 1)
Quarter: 2022Q4

REPORT INFORMATION
  Report Type: Report from Study
  Country: US (occurrence: US)
  Receive Date: 20221128
  Receipt Date: 20221128
  Transmission Date: 20230113
  Serious: No
  Sender: FDA-Public Use
  Company Number: US-ABBVIE-4169618

PATIENT
  Sex: Female

DRUGS (3)
  1. HUMIRA [Suspect]
     Active Substance: ADALIMUMAB
     Indication: Rheumatoid arthritis
     Dosage: 40 MILLIGRAM
     Route: 058
     Dates: start: 20180125, end: 20221016
  2. 2.5 mg Methotrexate [Concomitant]
     Indication: Product used for unknown indication
  3. 15 mg Meloxicam [Concomitant]
     Indication: Product used for unknown indication

REACTIONS (1)
  - Illness [Recovered/Resolved]
